FAERS Safety Report 9050560 (Version 1)
Quarter: 2013Q1

REPORT INFORMATION
  Report Type: Spontaneous
  Country: FR (occurrence: FR)
  Receive Date: 20130205
  Receipt Date: 20130205
  Transmission Date: 20140127
  Serious: Yes (Other)
  Sender: FDA-Public Use
  Company Number: FR-CELGENEUS-056-21880-13013959

PATIENT
  Sex: 0

DRUGS (3)
  1. REVLIMID [Suspect]
     Indication: POEMS SYNDROME
     Dosage: 10-25 MG
     Route: 048
  2. DEXAMETHASONE [Concomitant]
     Indication: POEMS SYNDROME
     Dosage: 20 OR 40 MG
     Route: 065
  3. COTRIMOXAZOLE [Concomitant]
     Indication: ANTIBIOTIC PROPHYLAXIS
     Dosage: 400 MILLIGRAM
     Route: 065

REACTIONS (11)
  - Drug reaction with eosinophilia and systemic symptoms [Unknown]
  - Venous thrombosis [Unknown]
  - Sepsis [Unknown]
  - Neutropenia [Unknown]
  - Anaemia [Unknown]
  - Irritability [Unknown]
  - Hyperglycaemia [Unknown]
  - POEMS syndrome [Unknown]
  - Oedema peripheral [Unknown]
  - Neuropathy peripheral [Unknown]
  - Diarrhoea [Unknown]
